FAERS Safety Report 9116289 (Version 1)
Quarter: 2013Q1

REPORT INFORMATION
  Report Type: Spontaneous
  Country: CA (occurrence: CA)
  Receive Date: 20130225
  Receipt Date: 20130225
  Transmission Date: 20140127
  Serious: Yes (Other)
  Sender: FDA-Public Use
  Company Number: CA-TEVA-387695USA

PATIENT
  Sex: Female

DRUGS (1)
  1. MONTELUKAST [Suspect]

REACTIONS (6)
  - Cellulitis [Unknown]
  - Laceration [Unknown]
  - Nodule [Unknown]
  - Tenderness [Unknown]
  - Erythema [Unknown]
  - Contusion [Unknown]
